FAERS Safety Report 24789451 (Version 5)
Quarter: 2025Q1

REPORT INFORMATION
  Report Type: Spontaneous
  Country: US (occurrence: US)
  Receive Date: 20241230
  Receipt Date: 20250327
  Transmission Date: 20250408
  Serious: No
  Sender: PFIZER
  Company Number: US-PFIZER INC-202400326046

PATIENT
  Age: 8 Year
  Sex: Male
  Weight: 20.2 kg

DRUGS (2)
  1. GENOTROPIN [Suspect]
     Active Substance: SOMATROPIN
     Indication: Growth hormone deficiency
     Dosage: ALTERNATE 0.6MG AND 0.8MG EVERY OTHER DAY - 7 DAYS PER WEEK
     Route: 058
  2. GENOTROPIN [Suspect]
     Active Substance: SOMATROPIN
     Dosage: ALTERNATE 0.6MG AND 0.8MG EVERY OTHER DAY - 7 DAYS PER WEEK
     Route: 058

REACTIONS (1)
  - Device physical property issue [Unknown]
